FAERS Safety Report 4449877-4 (Version None)
Quarter: 2004Q3

REPORT INFORMATION
  Report Type: 
  Country: None (occurrence: None)
  Receive Date: 20040803
  Receipt Date: 20030701
  Transmission Date: 20050211
  Serious: Yes (Hospitalization)
  Sender: FDA-Public Use
  Company Number: 2003166489US

PATIENT

DRUGS (1)
  1. CAMPTOSAR [Suspect]

REACTIONS (1)
  - DIARRHOEA [None]
